FAERS Safety Report 24068493 (Version 1)
Quarter: 2024Q3

REPORT INFORMATION
  Report Type: Spontaneous
  Country: AU (occurrence: AU)
  Receive Date: 20240710
  Receipt Date: 20240710
  Transmission Date: 20241016
  Serious: No
  Sender: ROCHE
  Company Number: AU-ROCHE-3548811

PATIENT
  Age: 70 Year
  Sex: Female

DRUGS (1)
  1. ROZLYTREK [Suspect]
     Active Substance: ENTRECTINIB
     Indication: Non-small cell lung cancer
     Route: 065
     Dates: start: 20231113

REACTIONS (5)
  - Oedema [Unknown]
  - Muscle oedema [Unknown]
  - Face oedema [Unknown]
  - Myositis [Unknown]
  - Fasciitis [Unknown]

NARRATIVE: CASE EVENT DATE: 20240301
